FAERS Safety Report 7298462-8 (Version None)
Quarter: 2011Q1

REPORT INFORMATION
  Report Type: 
  Country: None (occurrence: None)
  Receive Date: 20110217
  Receipt Date: 20110210
  Transmission Date: 20110831
  Serious: Yes (Other)
  Sender: FDA-Public Use
  Company Number: US-JNJFOC-20101007328

PATIENT
  Sex: Female
  Weight: 60.78 kg

DRUGS (12)
  1. BYSTOLIC [Suspect]
     Indication: BLOOD PRESSURE INCREASED
     Route: 048
  2. DOXYCYCLINE [Concomitant]
     Indication: IMMUNE SYSTEM DISORDER
     Route: 048
  3. PEPCID [Concomitant]
     Indication: GASTROINTESTINAL DISORDER
     Route: 048
  4. ZYRTEC [Concomitant]
     Indication: PRURITUS
     Route: 048
  5. ZYRTEC [Concomitant]
     Indication: IMMUNE SYSTEM DISORDER
     Route: 048
  6. VIACTIV CALCIUM CHEWS [Concomitant]
     Indication: NUTRITIONAL SUPPORT
     Route: 048
  7. HYDROCHLOROTHIAZIDE [Concomitant]
     Indication: HYPERTENSION
     Route: 048
  8. DOXYCYCLINE [Concomitant]
     Route: 048
  9. BYSTOLIC [Suspect]
     Route: 048
  10. PREDNISONE TAB [Concomitant]
     Indication: PEMPHIGOID
     Route: 048
  11. UNKNOWN MEDICATION [Concomitant]
     Indication: HYPERTENSION
     Route: 048
  12. SPORANOX [Suspect]
     Indication: HISTOPLASMOSIS
     Route: 048

REACTIONS (15)
  - GLAUCOMA [None]
  - NAUSEA [None]
  - PARALYSIS [None]
  - ASTHENIA [None]
  - BLOOD PRESSURE INCREASED [None]
  - ALOPECIA [None]
  - TRANSIENT ISCHAEMIC ATTACK [None]
  - HEART RATE DECREASED [None]
  - MALAISE [None]
  - VOMITING [None]
  - LIVER FUNCTION TEST ABNORMAL [None]
  - APHAGIA [None]
  - BLINDNESS [None]
  - HEADACHE [None]
  - WEIGHT INCREASED [None]
